FAERS Safety Report 19605965 (Version 2)
Quarter: 2021Q3

REPORT INFORMATION
  Report Type: Report from Study
  Country: US (occurrence: US)
  Receive Date: 20210723
  Receipt Date: 20210907
  Transmission Date: 20211014
  Serious: Yes (Death, Other)
  Sender: FDA-Public Use
  Company Number: US-JAZZ-2021-US-013454

PATIENT
  Sex: Female

DRUGS (4)
  1. LURBINECTEDIN [Suspect]
     Active Substance: LURBINECTEDIN
     Dosage: 4MG?5.7MG Q 3 WEEKS
     Dates: start: 20210506, end: 20210506
  2. LURBINECTEDIN [Suspect]
     Active Substance: LURBINECTEDIN
     Indication: PRODUCT USED FOR UNKNOWN INDICATION
     Dosage: 4 MILLIGRAM, Q21 DAYS
     Route: 042
     Dates: start: 20210414, end: 20210414
  3. LURBINECTEDIN [Suspect]
     Active Substance: LURBINECTEDIN
     Dosage: 4MG?5.7MG Q 3 WEEKS
     Dates: start: 20210527, end: 20210527
  4. LURBINECTEDIN [Suspect]
     Active Substance: LURBINECTEDIN
     Dosage: 4MG?5.7MG Q 3 WEEKS
     Dates: start: 20210617, end: 20210617

REACTIONS (1)
  - Death [Fatal]
